FAERS Safety Report 4509018-1 (Version None)
Quarter: 2004Q4

REPORT INFORMATION
  Report Type: 
  Country: None (occurrence: None)
  Receive Date: 20041122
  Receipt Date: 20041122
  Transmission Date: 20050328
  Serious: Yes (Death, Hospitalization)
  Sender: FDA-Public Use
  Company Number: None

PATIENT
  Age: 70 Year
  Sex: Female
  Weight: 61.2356 kg

DRUGS (2)
  1. ALTEPLASE [Suspect]
     Indication: VASCULAR OCCLUSION
     Dosage: 1MG   HOUR INTRA-ARTE
     Route: 013
     Dates: start: 20040530, end: 20040530
  2. HEPARIN [Suspect]
     Dosage: 300 UNITS  HOUR INTRAVENOUS
     Route: 042
     Dates: start: 20040530, end: 20040530

REACTIONS (3)
  - CEREBELLAR HAEMATOMA [None]
  - HYDROCEPHALUS [None]
  - MENTAL STATUS CHANGES [None]
